FAERS Safety Report 8808658 (Version 2)
Quarter: 2013Q1

REPORT INFORMATION
  Report Type: Spontaneous
  Country: US (occurrence: None)
  Receive Date: 20120919
  Receipt Date: 20121105
  Transmission Date: 20140127
  Serious: Yes (Other)
  Sender: FDA-Public Use
  Company Number: DEP_00712_2012

PATIENT
  Sex: Male

DRUGS (2)
  1. GRALISE [Suspect]
     Indication: PRODUCT USED FOR UNKNOWN INDICATION
     Dosage: (600 MG, 3 BEFORE BED)
  2. GABAPENTIN [Concomitant]

REACTIONS (5)
  - Convulsion [None]
  - Tremor [None]
  - Product substitution issue [None]
  - Myoclonus [None]
  - Toxicity to various agents [None]
